FAERS Safety Report 9434733 (Version 1)
Quarter: 2013Q3

REPORT INFORMATION
  Report Type: Report from Study
  Country: ES (occurrence: ES)
  Receive Date: 20130801
  Receipt Date: 20130801
  Transmission Date: 20140515
  Serious: Yes (Death, Other)
  Sender: FDA-Public Use
  Company Number: ES-PFIZER INC-2013222042

PATIENT
  Age: 81 Year
  Sex: Female

DRUGS (5)
  1. ALDACTONE [Suspect]
     Indication: CARDIAC FAILURE
     Dosage: 25 MG, 1X/DAY
     Route: 048
     Dates: end: 20121219
  2. ACENOCUMAROL [Interacting]
     Indication: ATRIAL FIBRILLATION
     Dosage: UNK
     Route: 048
     Dates: start: 20090206, end: 20121219
  3. DIGOXINA [Interacting]
     Indication: CARDIAC FAILURE
     Dosage: 0.13 MG, 1X/DAY
     Route: 048
     Dates: end: 20121219
  4. BISOPROLOL FUMARATE [Concomitant]
  5. PARACETAMOL [Concomitant]

REACTIONS (4)
  - Drug interaction [Fatal]
  - Cerebral haematoma [Fatal]
  - Cholangitis acute [Fatal]
  - Pancreatitis [Fatal]
